FAERS Safety Report 7412651-0 (Version None)
Quarter: 2011Q2

REPORT INFORMATION
  Report Type: 
  Country: None (occurrence: None)
  Receive Date: 20110413
  Receipt Date: 20110407
  Transmission Date: 20111010
  Serious: No
  Sender: FDA-Public Use
  Company Number: US-PFIZER INC-2011078002

PATIENT
  Sex: Female

DRUGS (1)
  1. NIFEDIPINE [Suspect]
     Dosage: 90 MG, UNK

REACTIONS (3)
  - DIZZINESS [None]
  - DRUG DISPENSING ERROR [None]
  - BLOOD PRESSURE INCREASED [None]
